FAERS Safety Report 9538687 (Version 1)
Quarter: 2013Q2

REPORT INFORMATION
  Report Type: Spontaneous
  Country: US (occurrence: None)
  Receive Date: 20130517
  Receipt Date: 20130517
  Transmission Date: 20140414
  Serious: Yes (Other)
  Sender: FDA-Public Use
  Company Number: 1000042725

PATIENT
  Age: 47 Year
  Sex: Female

DRUGS (7)
  1. VIIBRYD [Suspect]
     Indication: PAIN
     Route: 048
     Dates: start: 201210
  2. VIIBRYD (VILAZODONE HYDROCHLORIDE) (TABLETS) [Suspect]
     Indication: PAIN
     Route: 048
     Dates: end: 20130213
  3. TRIAMTERENE (TRIAMTERENE) (TRIAMTERENE) [Concomitant]
  4. DICLOFENAC (DICLOFENAC) (DICLOFENAC) [Concomitant]
  5. ZANIFLEX (TIZANIDINE HYDROCHLORIDE) (TIZANIDINE HYDROCHLORIDE) [Concomitant]
  6. NUCYNTA (TAPENTADOL HYDROCHLORIDE) (TAPENTADOL HYDROCHLORIDE) [Concomitant]
  7. HYDROCHLOROTHIAZIDE (HYDROCHLOROTHIAZIDE) (HYDROCHLOROTHIAZIDE) [Concomitant]

REACTIONS (4)
  - Diarrhoea [None]
  - Vomiting [None]
  - Insomnia [None]
  - Off label use [None]
